FAERS Safety Report 4298425-0 (Version None)
Quarter: 2004Q1

REPORT INFORMATION
  Report Type: 
  Country: None (occurrence: None)
  Receive Date: 20040218
  Receipt Date: 20030715
  Transmission Date: 20041129
  Serious: Yes (Other)
  Sender: FDA-Public Use
  Company Number: US-BRISTOL-MYERS SQUIBB COMPANY-12326922

PATIENT
  Age: 33 Year
  Sex: Female

DRUGS (7)
  1. STADOL [Suspect]
     Indication: MIGRAINE
     Route: 045
     Dates: start: 19950101
  2. ALCOHOL [Suspect]
     Route: 048
  3. XANAX [Concomitant]
  4. ATIVAN [Concomitant]
  5. FLEXERIL [Concomitant]
     Indication: BACK PAIN
  6. LORTAB [Concomitant]
     Indication: DENTAL TREATMENT
  7. LORTAB [Concomitant]
     Indication: FINGER AMPUTATION

REACTIONS (3)
  - DEPENDENCE [None]
  - DRUG ADDICT [None]
  - DRUG WITHDRAWAL SYNDROME [None]
